FAERS Safety Report 20230809 (Version 1)
Quarter: 2021Q4

REPORT INFORMATION
  Report Type: Spontaneous
  Country: SE (occurrence: SE)
  Receive Date: 20211227
  Receipt Date: 20211227
  Transmission Date: 20220303
  Serious: Yes (Other)
  Sender: FDA-Public Use
  Company Number: SE-CELLTRION INC.-2021SE017799

PATIENT

DRUGS (1)
  1. INFLECTRA [Suspect]
     Active Substance: INFLIXIMAB-DYYB
     Indication: Psoriatic arthropathy
     Dosage: UNK
     Dates: end: 20211207

REACTIONS (10)
  - Anaphylactic reaction [Unknown]
  - Hypersensitivity [Unknown]
  - Pruritus [Unknown]
  - Erythema [Unknown]
  - Dyspnoea [Unknown]
  - Burning sensation [Unknown]
  - Pain [Unknown]
  - Fear [Unknown]
  - Emotional distress [Unknown]
  - Fatigue [Unknown]

NARRATIVE: CASE EVENT DATE: 20211207
